FAERS Safety Report 9093242 (Version 1)
Quarter: 2013Q1

REPORT INFORMATION
  Report Type: Spontaneous
  Country: US (occurrence: None)
  Receive Date: 20130122
  Receipt Date: 20130122
  Transmission Date: 20140127
  Serious: Yes (Death)
  Sender: FDA-Public Use
  Company Number: 1552695

PATIENT
  Age: 47 Year
  Sex: Male

DRUGS (6)
  1. DILTIAZEM HYDROCHLORIDE [Suspect]
     Dosage: NOT REPORTED,  UNKNOWN,  UNKNOWN?UNKNOWN
  2. HEROIN [Suspect]
     Dosage: NOT REPORTED,  UNKNOWN,  UNKNOWN?UNKNOWN
  3. COCAINE [Suspect]
     Dosage: NOT REPORTED,  UNKNOWN,  UNKNOWN?UNKNOWN
  4. TRAZODONE [Suspect]
     Dosage: NOT REPORTED,  UNKNOWN,  UNKNOWN?UNKNOWN
  5. MARIJUANA [Suspect]
     Dosage: NOT REPORTED,  UNKNOWN,  UNKNOWN?UNKNOWN
  6. DOXYLAMINE [Suspect]
     Dosage: NOT REPORTED,  UNKNOWN,  UNKNOWN?UNKNOWN

REACTIONS (4)
  - Respiratory arrest [None]
  - Cardiac arrest [None]
  - Poisoning [None]
  - Potentiating drug interaction [None]
